FAERS Safety Report 6549765-3 (Version None)
Quarter: 2010Q1

REPORT INFORMATION
  Report Type: 
  Country: None (occurrence: None)
  Receive Date: 20100125
  Receipt Date: 20100115
  Transmission Date: 20100710
  Serious: Yes (Other)
  Sender: FDA-Public Use
  Company Number: US-ASTRAZENECA-2010SE02336

PATIENT
  Age: 50 Year
  Sex: Female

DRUGS (1)
  1. SEROQUEL XR [Suspect]
     Route: 048

REACTIONS (2)
  - ABDOMINAL DISCOMFORT [None]
  - EATING DISORDER [None]
